FAERS Safety Report 16240967 (Version 1)
Quarter: 2019Q2

REPORT INFORMATION
  Report Type: Report from Study
  Country: DE (occurrence: DE)
  Receive Date: 20190425
  Receipt Date: 20190425
  Transmission Date: 20190711
  Serious: Yes (Hospitalization)
  Sender: FDA-Public Use
  Company Number: DE-GILEAD-2019-0403516

PATIENT
  Age: 14 Year
  Sex: Female
  Weight: 49.5 kg

DRUGS (2)
  1. AZTREONAM LYSINE [Suspect]
     Active Substance: AZTREONAM LYSINE
     Indication: CYSTIC FIBROSIS
     Dosage: 75 MG, TID X 28 DAYS
     Route: 055
     Dates: start: 20190328, end: 20190410
  2. AZTREONAM LYSINE [Suspect]
     Active Substance: AZTREONAM LYSINE
     Indication: PSEUDOMONAS INFECTION
     Dosage: 75 UNK
     Route: 055
     Dates: start: 20190411, end: 20190413

REACTIONS (1)
  - Bronchial obstruction [Not Recovered/Not Resolved]

NARRATIVE: CASE EVENT DATE: 20190417
